FAERS Safety Report 15376694 (Version 7)
Quarter: 2020Q2

REPORT INFORMATION
  Report Type: Spontaneous
  Country: JP (occurrence: JP)
  Receive Date: 20180913
  Receipt Date: 20200609
  Transmission Date: 20200713
  Serious: Yes (Other)
  Sender: FDA-Public Use
  Company Number: JP-009507513-1807JPN002918J

PATIENT
  Sex: Male
  Weight: 84 kg

DRUGS (1)
  1. PEMBROLIZUMAB. [Suspect]
     Active Substance: PEMBROLIZUMAB
     Indication: HODGKIN^S DISEASE
     Dosage: 200 MILLIGRAM, Q3W
     Route: 041
     Dates: start: 20180607, end: 20180719

REACTIONS (2)
  - Dermatitis bullous [Recovered/Resolved]
  - Aplasia pure red cell [Recovered/Resolved]
